FAERS Safety Report 10925185 (Version 1)
Quarter: 2015Q1

REPORT INFORMATION
  Report Type: Spontaneous
  Country: US (occurrence: None)
  Receive Date: 20150316
  Receipt Date: 20150316
  Transmission Date: 20150721
  Serious: Yes (Other)
  Sender: FDA-Public Use
  Company Number: None

PATIENT
  Age: 51 Year
  Sex: Male
  Weight: 74.84 kg

DRUGS (8)
  1. ASPIRIN. [Concomitant]
     Active Substance: ASPIRIN
  2. MULTIVITAMIN [Concomitant]
     Active Substance: VITAMINS
  3. LOSARTAN [Concomitant]
     Active Substance: LOSARTAN
  4. PROBIOTIC [Concomitant]
     Active Substance: PROBIOTICS NOS
  5. CLINDAMYCIN HCL 300 MG [Suspect]
     Active Substance: CLINDAMYCIN HYDROCHLORIDE
     Indication: POST PROCEDURAL INFECTION
     Dosage: 3 PILLS
     Route: 048
     Dates: start: 20150311, end: 20150312
  6. TURMERIC [Concomitant]
     Active Substance: TURMERIC
  7. FISH OIL [Concomitant]
     Active Substance: FISH OIL
  8. CLARITIN [Concomitant]
     Active Substance: LORATADINE

REACTIONS (4)
  - Lip swelling [None]
  - Feeling hot [None]
  - Erythema [None]
  - Sleep disorder due to general medical condition, insomnia type [None]

NARRATIVE: CASE EVENT DATE: 20150313
